FAERS Safety Report 6817537-8 (Version None)
Quarter: 2010Q3

REPORT INFORMATION
  Report Type: 
  Country: None (occurrence: None)
  Receive Date: 20100706
  Receipt Date: 20100706
  Transmission Date: 20110219
  Serious: Yes (Other)
  Sender: FDA-Public Use
  Company Number: US-JNJFOC-20100502569

PATIENT
  Sex: Female

DRUGS (4)
  1. CHILDREN'S MOTRIN [Suspect]
     Indication: PYREXIA
     Route: 065
  2. CHILDREN'S MOTRIN [Suspect]
     Indication: TEETHING
     Route: 065
  3. CHILDREN'S TYLENOL SUSPENSION [Suspect]
     Indication: PYREXIA
  4. CHILDREN'S TYLENOL SUSPENSION [Suspect]
     Indication: TEETHING

REACTIONS (2)
  - CAMPYLOBACTER INFECTION [None]
  - PRODUCT QUALITY ISSUE [None]
